FAERS Safety Report 14985086 (Version 2)
Quarter: 2019Q3

REPORT INFORMATION
  Report Type: Report from Study
  Country: DE (occurrence: DE)
  Receive Date: 20180607
  Receipt Date: 20190819
  Transmission Date: 20191004
  Serious: Yes (Hospitalization, Other)
  Sender: FDA-Public Use
  Company Number: DE-BRISTOL-MYERS SQUIBB COMPANY-BMS-2018-051408

PATIENT
  Age: 74 Year
  Sex: Female
  Weight: 76 kg

DRUGS (1)
  1. APIXABAN [Suspect]
     Active Substance: APIXABAN
     Indication: CEREBROVASCULAR ACCIDENT PROPHYLAXIS
     Dosage: 5 MILLIGRAM, BID
     Route: 048
     Dates: start: 20160801, end: 20180416

REACTIONS (2)
  - Eye disorder [Unknown]
  - Hyphaema [Unknown]

NARRATIVE: CASE EVENT DATE: 20180420
